FAERS Safety Report 25632047 (Version 6)
Quarter: 2025Q4

REPORT INFORMATION
  Report Type: Report from Study
  Country: EU (occurrence: EU)
  Receive Date: 20250801
  Receipt Date: 20251202
  Transmission Date: 20260117
  Serious: Yes (Hospitalization)
  Sender: ABBVIE
  Company Number: EU-ABBVIE-6097378

PATIENT
  Age: 84 Year
  Sex: Female

DRUGS (3)
  1. FOSCARBIDOPA\FOSLEVODOPA [Suspect]
     Active Substance: FOSCARBIDOPA\FOSLEVODOPA
     Indication: Parkinson^s disease
     Dosage: CR 0.38 ML/H, CRN 0.32 ML/H, CRH 0,40 ML/H ED 0.20 ML
     Route: 058
     Dates: start: 20240723
  2. FOSCARBIDOPA\FOSLEVODOPA [Suspect]
     Active Substance: FOSCARBIDOPA\FOSLEVODOPA
     Dosage: CR 0.38 ML/H, CRN 0.30 ML/H, CRH 0.40 ML/H ED 0.20 ML ?DOSE REDUCED
     Route: 058
  3. FOSCARBIDOPA\FOSLEVODOPA [Suspect]
     Active Substance: FOSCARBIDOPA\FOSLEVODOPA
     Dosage: CRN: 0.30 ML/H, CR: 0.37 ML/H, CRH: 0.40 ML/H, ED: 0.20 ML
     Route: 058

REACTIONS (10)
  - Unresponsive to stimuli [Recovered/Resolved]
  - On and off phenomenon [Unknown]
  - Fatigue [Not Recovered/Not Resolved]
  - Infusion site erythema [Not Recovered/Not Resolved]
  - Hallucination [Unknown]
  - Infusion site induration [Recovered/Resolved]
  - Mobility decreased [Not Recovered/Not Resolved]
  - Infusion site pain [Not Recovered/Not Resolved]
  - Infusion site haematoma [Not Recovered/Not Resolved]
  - Infusion site induration [Not Recovered/Not Resolved]

NARRATIVE: CASE EVENT DATE: 20250701
